FAERS Safety Report 9631983 (Version 1)
Quarter: 2013Q4

REPORT INFORMATION
  Report Type: Report from Study
  Country: CA (occurrence: CA)
  Receive Date: 20131018
  Receipt Date: 20131018
  Transmission Date: 20140711
  Serious: Yes (Hospitalization)
  Sender: FDA-Public Use
  Company Number: CA-JNJFOC-20131007019

PATIENT
  Age: 81 Year
  Sex: Male
  Weight: 53 kg

DRUGS (25)
  1. REMICADE [Suspect]
     Indication: CROHN^S DISEASE
     Dosage: 0,2,6 WEEK
     Route: 042
     Dates: start: 20131002
  2. REMICADE [Suspect]
     Indication: COLITIS ULCERATIVE
     Dosage: 0,2,6 WEEK
     Route: 042
     Dates: start: 20131002
  3. SYMBICORT TURBOHALER [Concomitant]
     Route: 065
  4. FINASTERIDE [Concomitant]
     Route: 065
  5. IPRATROPIUM [Concomitant]
     Route: 065
  6. SALBUTAMOL [Concomitant]
     Route: 065
  7. ALVESCO [Concomitant]
     Route: 065
  8. CALCIUM AND VIT D [Concomitant]
     Route: 065
  9. VITAMIN B12 [Concomitant]
     Route: 065
  10. FOLIC ACID [Concomitant]
     Route: 065
  11. VITAMIN C [Concomitant]
     Route: 065
  12. OMEGA-3 [Concomitant]
     Route: 065
  13. CENTRUM NOS [Concomitant]
     Route: 065
  14. VITALUX NOS [Concomitant]
     Route: 065
  15. COQ10 [Concomitant]
     Route: 065
  16. PANCRELIPASE [Concomitant]
     Route: 065
  17. TIOTROPIUM BROMIDE [Concomitant]
     Route: 065
  18. MICARDIS [Concomitant]
     Route: 065
  19. ZOPICLONE [Concomitant]
     Dosage: AT BED TIME
     Route: 065
  20. SYNTHROID [Concomitant]
     Route: 065
  21. CIPRALEX [Concomitant]
     Route: 065
  22. OLANZAPINE [Concomitant]
     Dosage: AT BED TIME
     Route: 065
  23. LIPITOR [Concomitant]
     Route: 065
  24. ALFUZOSIN [Concomitant]
     Route: 065
  25. CODEINE [Concomitant]
     Route: 065

REACTIONS (3)
  - Asthenia [Not Recovered/Not Resolved]
  - Dehydration [Not Recovered/Not Resolved]
  - Fall [Not Recovered/Not Resolved]
